FAERS Safety Report 7276455-4 (Version None)
Quarter: 2011Q1

REPORT INFORMATION
  Report Type: 
  Country: None (occurrence: None)
  Receive Date: 20110204
  Receipt Date: 20110124
  Transmission Date: 20110831
  Serious: Yes (Other)
  Sender: FDA-Public Use
  Company Number: ES-WATSON-2011-01302

PATIENT
  Age: 18 Year
  Sex: Female

DRUGS (1)
  1. IBUPROFEN [Suspect]
     Indication: PAIN
     Dosage: 600 MG, TWICE
     Dates: start: 20080101

REACTIONS (2)
  - ALLERGIC RESPIRATORY DISEASE [None]
  - ANALGESIC ASTHMA SYNDROME [None]
